FAERS Safety Report 14562879 (Version 1)
Quarter: 2018Q1

REPORT INFORMATION
  Report Type: Spontaneous
  Country: DE (occurrence: DE)
  Receive Date: 20180222
  Receipt Date: 20180222
  Transmission Date: 20180509
  Serious: Yes (Life-Threatening, Hospitalization, Other)
  Sender: FDA-Public Use
  Company Number: DE-BAYER-2018-031176

PATIENT
  Age: 0 Day
  Sex: Female

DRUGS (1)
  1. QLAIRA FILMTABLETTEN [Suspect]
     Active Substance: DIENOGEST\ESTRADIOL VALERATE
     Indication: CONTRACEPTION
     Dosage: UNK
     Route: 012
     Dates: start: 201701, end: 201709

REACTIONS (3)
  - Premature baby [None]
  - Low birth weight baby [None]
  - Exposure during pregnancy [None]

NARRATIVE: CASE EVENT DATE: 20171227
